FAERS Safety Report 16550667 (Version 2)
Quarter: 2019Q3

REPORT INFORMATION
  Report Type: Spontaneous
  Country: US (occurrence: US)
  Receive Date: 20190710
  Receipt Date: 20190712
  Transmission Date: 20191004
  Serious: No
  Sender: FDA-Public Use
  Company Number: US-UNITED THERAPEUTICS-UNT-2019-009837

PATIENT
  Age: 56 Year
  Sex: Female
  Weight: 44.22 kg

DRUGS (4)
  1. REMODULIN [Suspect]
     Active Substance: TREPROSTINIL
     Dosage: UNK, CONTINUING (INCREASED DOSE)
     Route: 041
  2. REMODULIN [Suspect]
     Active Substance: TREPROSTINIL
     Dosage: UNK, CONTINUING (INCREASED DOSE)
     Route: 041
  3. REMODULIN [Suspect]
     Active Substance: TREPROSTINIL
     Dosage: 0.014 ?G/KG, CONTINUING
     Route: 041
  4. REMODULIN [Suspect]
     Active Substance: TREPROSTINIL
     Indication: PULMONARY ARTERIAL HYPERTENSION
     Dosage: 0.011 ?G/KG, CONTINUING
     Route: 041
     Dates: start: 20190604

REACTIONS (8)
  - Diarrhoea [Recovering/Resolving]
  - Injection site pruritus [Unknown]
  - Pruritus generalised [Not Recovered/Not Resolved]
  - Nausea [Unknown]
  - Epistaxis [Recovered/Resolved]
  - Migraine [Unknown]
  - Diabetes mellitus [Unknown]
  - Dry skin [Unknown]

NARRATIVE: CASE EVENT DATE: 201906
